FAERS Safety Report 26193036 (Version 1)
Quarter: 2025Q4

REPORT INFORMATION
  Report Type: Spontaneous
  Country: CA (occurrence: CA)
  Receive Date: 20251223
  Receipt Date: 20251223
  Transmission Date: 20260119
  Serious: Yes (Other)
  Sender: SANOFI AVENTIS
  Company Number: CA-DialogSolutions-SAAVPROD-PI854987-C1

PATIENT
  Age: 52 Year
  Sex: Female

DRUGS (1)
  1. IRBESARTAN [Suspect]
     Active Substance: IRBESARTAN
     Indication: Hypertension
     Dosage: UNK

REACTIONS (17)
  - Lichen planus [Recovered/Resolved]
  - Oesophageal disorder [Recovered/Resolved]
  - Skin disorder [Recovered/Resolved]
  - Oral mucosal erythema [Recovered/Resolved]
  - Oral mucosal exfoliation [Recovered/Resolved]
  - Tongue erosion [Recovered/Resolved]
  - Oral mucosa erosion [Recovered/Resolved]
  - Dyspareunia [Recovered/Resolved]
  - Vulvovaginal pain [Recovered/Resolved]
  - Vaginal erosion [Recovered/Resolved]
  - Vaginal ulceration [Recovered/Resolved]
  - Vaginal stricture [Recovered/Resolved]
  - Urethral stenosis [Recovered/Resolved]
  - Dysphagia [Recovered/Resolved]
  - Odynophagia [Recovered/Resolved]
  - Erosive oesophagitis [Recovered/Resolved]
  - Oesophageal stenosis [Recovered/Resolved]
